FAERS Safety Report 5363112-4 (Version None)
Quarter: 2007Q2

REPORT INFORMATION
  Report Type: 
  Country: None (occurrence: None)
  Receive Date: 20070615
  Receipt Date: 20070531
  Transmission Date: 20071010
  Serious: Yes (Other)
  Sender: FDA-Public Use
  Company Number: 2007P1000263

PATIENT
  Age: 47 Year
  Sex: Male

DRUGS (1)
  1. BUSULFAN (BUSULFAN) [Suspect]
     Indication: STEM CELL TRANSPLANT
     Dosage: ;IV
     Route: 042
     Dates: start: 20070413, end: 20070416

REACTIONS (5)
  - COAGULATION FACTOR XIII LEVEL DECREASED [None]
  - DISEASE PROGRESSION [None]
  - HUMAN T-CELL LYMPHOTROPIC VIRUS TYPE I INFECTION [None]
  - MALLORY-WEISS SYNDROME [None]
  - STEM CELL TRANSPLANT [None]
